FAERS Safety Report 8016827-3 (Version None)
Quarter: 2012Q1

REPORT INFORMATION
  Report Type: 
  Country: None (occurrence: None)
  Receive Date: 20120102
  Receipt Date: 20111226
  Transmission Date: 20120608
  Serious: Yes (Hospitalization, Other)
  Sender: FDA-Public Use
  Company Number: JP-COVIDIEN/TYCO HEALTHCARE/MALLINCKRODT-T201102944

PATIENT
  Sex: Female
  Weight: 39.7 kg

DRUGS (7)
  1. METHADONE HCL [Suspect]
     Indication: CANCER PAIN
     Dosage: 15 MG, BID
     Route: 048
     Dates: start: 20111206, end: 20111220
  2. RINDERON                           /00008501/ [Concomitant]
     Indication: PRODUCT USED FOR UNKNOWN INDICATION
     Dosage: 2 MG, QD
     Dates: start: 20111129
  3. MAGMITT [Concomitant]
     Indication: PRODUCT USED FOR UNKNOWN INDICATION
     Dosage: 330-660 MG, TID
     Dates: start: 20111122
  4. METHADONE HCL [Suspect]
     Dosage: 10 MG, TID
     Route: 048
     Dates: start: 20111122, end: 20111205
  5. LANSOPRAZOLE [Concomitant]
     Indication: PRODUCT USED FOR UNKNOWN INDICATION
     Dosage: 15 MG, QD
     Dates: start: 20111212
  6. OXINORM                            /00045603/ [Concomitant]
     Indication: PAIN
     Dosage: 10 MG, PRN
     Dates: start: 20110402
  7. MOTILIUM [Concomitant]
     Indication: PRODUCT USED FOR UNKNOWN INDICATION
     Dosage: 10 MG, TID
     Dates: start: 20111128

REACTIONS (7)
  - FALL [None]
  - NAUSEA [None]
  - DECREASED APPETITE [None]
  - MALAISE [None]
  - ELECTROCARDIOGRAM QT PROLONGED [None]
  - VOMITING [None]
  - HEAD INJURY [None]
